FAERS Safety Report 9565245 (Version 1)
Quarter: 2013Q3

REPORT INFORMATION
  Report Type: Spontaneous
  Country: DO (occurrence: DO)
  Receive Date: 20130930
  Receipt Date: 20130930
  Transmission Date: 20140515
  Serious: Yes (Hospitalization, Other)
  Sender: FDA-Public Use
  Company Number: DO-009507513-1309DOM008784

PATIENT
  Sex: Female

DRUGS (1)
  1. AVOBENZONE (+) HOMOSALATE (+) OCTISALATE (+) OCTOCRYLENE (+) OXYBENZON [Suspect]
     Dosage: UNK
     Dates: start: 20130823, end: 201308

REACTIONS (5)
  - Rash [Unknown]
  - Eye oedema [Unknown]
  - Face oedema [Unknown]
  - Hypersensitivity [Unknown]
  - Feeling abnormal [Unknown]
